FAERS Safety Report 14564548 (Version 1)
Quarter: 2018Q1

REPORT INFORMATION
  Report Type: Spontaneous
  Country: IT (occurrence: IT)
  Receive Date: 20180222
  Receipt Date: 20180222
  Transmission Date: 20180509
  Serious: Yes (Other)
  Sender: FDA-Public Use
  Company Number: IT-SA-2017SA079162

PATIENT
  Age: 29 Year
  Sex: Female
  Weight: 52 kg

DRUGS (6)
  1. RIFAMPICIN [Suspect]
     Active Substance: RIFAMPIN
     Indication: TUBERCULOUS PLEURISY
     Route: 048
     Dates: start: 20110201, end: 20110225
  2. OFLOXACIN. [Concomitant]
     Active Substance: OFLOXACIN
  3. STREPTOMYCIN [Concomitant]
     Active Substance: STREPTOMYCIN\STREPTOMYCIN SULFATE
  4. ISONIAZID. [Suspect]
     Active Substance: ISONIAZID
     Indication: TUBERCULOUS PLEURISY
     Route: 048
     Dates: start: 20110201, end: 20110225
  5. PYRAZINAMIDE. [Suspect]
     Active Substance: PYRAZINAMIDE
     Indication: TUBERCULOUS PLEURISY
     Dosage: DOSE:1 UNIT(S)
     Route: 048
     Dates: start: 20110201, end: 20110225
  6. ETHAMBUTOL [Suspect]
     Active Substance: ETHAMBUTOL HYDROCHLORIDE
     Indication: TUBERCULOUS PLEURISY
     Dosage: DOSE:1 UNIT(S)
     Route: 048
     Dates: start: 20110201, end: 20110225

REACTIONS (2)
  - Hepatotoxicity [Recovered/Resolved]
  - Musculoskeletal pain [Recovered/Resolved]

NARRATIVE: CASE EVENT DATE: 20110224
